FAERS Safety Report 18045598 (Version 1)
Quarter: 2020Q3

REPORT INFORMATION
  Report Type: Spontaneous
  Country: GB (occurrence: GB)
  Receive Date: 20200720
  Receipt Date: 20200720
  Transmission Date: 20201103
  Serious: Yes (Hospitalization)
  Sender: FDA-Public Use
  Company Number: GB-MYLANLABS-2020M1064529

PATIENT
  Sex: Female

DRUGS (2)
  1. EFAVIRENZ MYLAN [Suspect]
     Active Substance: EFAVIRENZ
     Indication: PRODUCT USED FOR UNKNOWN INDICATION
     Dosage: UNK (STRENGTH 600)
     Route: 048
  2. EMTRICITABINE W/TENOFOVIR [Concomitant]
     Active Substance: EMTRICITABINE\TENOFOVIR DISOPROXIL
     Dosage: UNK (STRENGTH 200/245)
     Route: 048

REACTIONS (1)
  - Hospitalisation [Unknown]
